FAERS Safety Report 7962145-9 (Version None)
Quarter: 2011Q4

REPORT INFORMATION
  Report Type: 
  Country: None (occurrence: None)
  Receive Date: 20111207
  Receipt Date: 20111202
  Transmission Date: 20120403
  Serious: Yes (Death, Other)
  Sender: FDA-Public Use
  Company Number: US-AMGEN-QUU433355

PATIENT
  Sex: Female

DRUGS (2)
  1. NPLATE [Suspect]
     Indication: IDIOPATHIC THROMBOCYTOPENIC PURPURA
     Dosage: UNK
     Route: 058
     Dates: start: 20080916, end: 20090701
  2. REVLIMID [Concomitant]
     Indication: LYMPHADENOPATHY

REACTIONS (24)
  - PYREXIA [None]
  - JOINT DISLOCATION [None]
  - OEDEMA PERIPHERAL [None]
  - ABDOMINAL DISCOMFORT [None]
  - LYMPHADENOPATHY [None]
  - THERAPEUTIC RESPONSE DECREASED [None]
  - PNEUMONIA [None]
  - NEUROPATHY PERIPHERAL [None]
  - DECREASED APPETITE [None]
  - FATIGUE [None]
  - RASH [None]
  - OROPHARYNGEAL CANDIDIASIS [None]
  - HYPERHIDROSIS [None]
  - NEUTROPENIA [None]
  - UPPER AIRWAY OBSTRUCTION [None]
  - CHRONIC LYMPHOCYTIC LEUKAEMIA [None]
  - INTERSTITIAL LUNG DISEASE [None]
  - BRONCHITIS CHRONIC [None]
  - THROMBOCYTOPENIA [None]
  - OSTEOPOROSIS [None]
  - ARTHRITIS [None]
  - RESPIRATORY MONILIASIS [None]
  - COMPRESSION FRACTURE [None]
  - HYPOGAMMAGLOBULINAEMIA [None]
